FAERS Safety Report 8771801 (Version 1)
Quarter: 2012Q4

REPORT INFORMATION
  Report Type: 
  Country: BR (occurrence: BR)
  Receive Date: 20120905
  Receipt Date: 20120905
  Transmission Date: 20130627
  Serious: Yes (Hospitalization, Other)
  Sender: FDA-Public Use
  Company Number: BR-ROCHE-1114907

PATIENT
  Age: 77 Year
  Sex: Female
  Weight: 43 kg

DRUGS (4)
  1. BONVIVA [Suspect]
     Indication: OSTEOPOROSIS
     Route: 048
  2. MOTILIUM (BRAZIL) [Concomitant]
     Indication: GASTRIC DISORDER
     Route: 065
  3. BUSCOPAN [Concomitant]
     Indication: ABDOMINAL PAIN
     Route: 065
  4. OMEPRAZOLE [Concomitant]
     Route: 065

REACTIONS (4)
  - Osteoporosis [Not Recovered/Not Resolved]
  - Fall [Unknown]
  - Cardiac disorder [Unknown]
  - Intestinal fistula [Unknown]
